FAERS Safety Report 12885198 (Version 1)
Quarter: 2016Q4

REPORT INFORMATION
  Report Type: Spontaneous
  Country: GB (occurrence: GB)
  Receive Date: 20161026
  Receipt Date: 20161026
  Transmission Date: 20170207
  Serious: Yes (Hospitalization)
  Sender: FDA-Public Use
  Company Number: GB-PFIZER INC-1943763

PATIENT
  Age: 12 Year
  Sex: Female

DRUGS (5)
  1. ANAKINRA [Suspect]
     Active Substance: ANAKINRA
     Dosage: UNK, 1X/DAY
  2. CERVARIX [Suspect]
     Active Substance: HUMAN PAPILLOMAVIRUS TYPE 16 L1 CAPSID PROTEIN RESIDUES 2-471 ANTIGEN\HUMAN PAPILLOMAVIRUS TYPE 18 L1 CAPSID PROTEIN RESIDUES 2-472 ANTIGEN
     Indication: PROPHYLAXIS
     Dosage: 1 DF, 1 INJECTION SINGLE DOSE, FREQ: 1 DAY; INTERVAL: 1
  3. PREDNISOLONE. [Suspect]
     Active Substance: PREDNISOLONE
     Dosage: UNK
  4. TOCILIZUMAB [Suspect]
     Active Substance: TOCILIZUMAB
     Dosage: UNK
  5. METHOTREXATE SODIUM. [Suspect]
     Active Substance: METHOTREXATE SODIUM
     Dosage: UNK

REACTIONS (19)
  - Arthralgia [Unknown]
  - Fatigue [Unknown]
  - Hyperglycaemia [Unknown]
  - Rash [Unknown]
  - Immobile [Unknown]
  - Pyrexia [Unknown]
  - Joint swelling [Unknown]
  - Weight decreased [Unknown]
  - Infection [Unknown]
  - Pain [Unknown]
  - Malaise [Unknown]
  - Juvenile idiopathic arthritis [Unknown]
  - Local swelling [Unknown]
  - Pruritus [Unknown]
  - Somnolence [Unknown]
  - Dyspnoea [Unknown]
  - Cough [Unknown]
  - Pericardial effusion [Unknown]
  - Tonsillitis [Unknown]
